FAERS Safety Report 4653173-X (Version None)
Quarter: 2005Q2

REPORT INFORMATION
  Report Type: 
  Country: None (occurrence: None)
  Receive Date: 20050503
  Receipt Date: 20050420
  Transmission Date: 20051028
  Serious: Yes (Other)
  Sender: FDA-Public Use
  Company Number: 2005063320

PATIENT
  Sex: Female
  Weight: 63.5036 kg

DRUGS (4)
  1. ZYRTEC [Suspect]
     Indication: MULTIPLE ALLERGIES
     Dosage: 10 MG 910 MG, 1 IN 1 D), ORAL
     Route: 048
     Dates: start: 19980101
  2. DICLOFENAC SODIUM [Concomitant]
  3. VITAMINS (VITAMINS) [Concomitant]
  4. ALL OTHER THERAPEUTIC PRODUCTS (ALL OTHER THERAPEUTIC PRODUCTS) [Concomitant]

REACTIONS (3)
  - BASAL CELL CARCINOMA [None]
  - CONDITION AGGRAVATED [None]
  - SQUAMOUS CELL CARCINOMA OF SKIN [None]
